FAERS Safety Report 20824714 (Version 1)
Quarter: 2022Q2

REPORT INFORMATION
  Report Type: Spontaneous
  Country: FR (occurrence: FR)
  Receive Date: 20220513
  Receipt Date: 20220513
  Transmission Date: 20220721
  Serious: Yes (Hospitalization)
  Sender: FDA-Public Use
  Company Number: None

PATIENT
  Age: 77 Year
  Sex: Male
  Weight: 55 kg

DRUGS (2)
  1. CLOPIDOGREL BESILATE [Suspect]
     Active Substance: CLOPIDOGREL BESILATE
     Indication: Thrombosis prophylaxis
     Dosage: UNIT DOSE 75MG,DURATION 369 DAYS
     Route: 048
     Dates: start: 20210401, end: 20220405
  2. KARDEGIC [Suspect]
     Active Substance: ASPIRIN DL-LYSINE
     Indication: Thrombosis prophylaxis
     Dosage: KARDEGIC 75 MG, POWDER FOR ORAL SOLUTION IN SACHET-DOSE,UNIT DOSE 75MG,DURATION 369 DAYS
     Route: 048
     Dates: start: 20210401, end: 20220405

REACTIONS (1)
  - Rectal haemorrhage [Recovered/Resolved]

NARRATIVE: CASE EVENT DATE: 20220404
